FAERS Safety Report 10975854 (Version 1)
Quarter: 2015Q2

REPORT INFORMATION
  Report Type: Spontaneous
  Country: FR (occurrence: FR)
  Receive Date: 20150401
  Receipt Date: 20150401
  Transmission Date: 20150821
  Serious: Yes (Hospitalization)
  Sender: FDA-Public Use
  Company Number: FR-SA-2015SA038980

PATIENT
  Age: 84 Year
  Sex: Male

DRUGS (2)
  1. APROVEL [Concomitant]
     Active Substance: IRBESARTAN
     Dates: start: 201410, end: 20141119
  2. LASILIX [Suspect]
     Active Substance: FUROSEMIDE
     Route: 048
     Dates: end: 201411

REACTIONS (2)
  - Confusional state [Unknown]
  - Hyponatraemia [Recovered/Resolved]

NARRATIVE: CASE EVENT DATE: 20141119
